FAERS Safety Report 5002859-6 (Version None)
Quarter: 2006Q2

REPORT INFORMATION
  Report Type: 
  Country: None (occurrence: None)
  Receive Date: 20060512
  Receipt Date: 20060419
  Transmission Date: 20061013
  Serious: Yes (Hospitalization)
  Sender: FDA-Public Use
  Company Number: ZA200605000605

PATIENT
  Sex: Male

DRUGS (1)
  1. CIALIS [Suspect]
     Dosage: 20 MG, AS NEEDED, ORAL
     Route: 048

REACTIONS (3)
  - DEPRESSED LEVEL OF CONSCIOUSNESS [None]
  - HYPOGLYCAEMIA [None]
  - ROAD TRAFFIC ACCIDENT [None]
